FAERS Safety Report 8221750-5 (Version None)
Quarter: 2012Q1

REPORT INFORMATION
  Report Type: 
  Country: None (occurrence: None)
  Receive Date: 20120320
  Receipt Date: 20120320
  Transmission Date: 20120608
  Serious: Yes (Life-Threatening, Hospitalization)
  Sender: FDA-Public Use
  Company Number: None

PATIENT
  Sex: Male
  Weight: 72.574 kg

DRUGS (1)
  1. LOVENOX [Suspect]
     Indication: KNEE ARTHROPLASTY
     Dosage: 1 INJECTION
     Dates: start: 20100907, end: 20100915

REACTIONS (9)
  - PYREXIA [None]
  - CARDIAC DISORDER [None]
  - ADRENAL INSUFFICIENCY [None]
  - AMNESIA [None]
  - MOTOR DYSFUNCTION [None]
  - HYPERSENSITIVITY [None]
  - DEEP VEIN THROMBOSIS [None]
  - PULMONARY EMBOLISM [None]
  - RESTLESSNESS [None]
